FAERS Safety Report 10957077 (Version 1)
Quarter: 2015Q1

REPORT INFORMATION
  Report Type: Spontaneous
  Country: US (occurrence: US)
  Receive Date: 20150326
  Receipt Date: 20150326
  Transmission Date: 20150721
  Serious: No
  Sender: FDA-Public Use
  Company Number: US-PFIZER INC-2015102326

PATIENT
  Sex: Male

DRUGS (2)
  1. STREPTOMYCIN [Suspect]
     Active Substance: STREPTOMYCIN\STREPTOMYCIN SULFATE
     Dosage: UNK
     Route: 065
  2. PROCAN [Suspect]
     Active Substance: PROCAINAMIDE HYDROCHLORIDE

REACTIONS (3)
  - Drug hypersensitivity [Unknown]
  - Urticaria [Unknown]
  - Swelling face [Unknown]
